FAERS Safety Report 23683764 (Version 1)
Quarter: 2024Q1

REPORT INFORMATION
  Report Type: Spontaneous
  Country: US (occurrence: None)
  Receive Date: 20240328
  Receipt Date: 20240328
  Transmission Date: 20240409
  Serious: Yes (Hospitalization)
  Sender: FDA-Public Use
  Company Number: None

PATIENT
  Age: 56 Year
  Sex: Male

DRUGS (1)
  1. NYVEPRIA [Suspect]
     Active Substance: PEGFILGRASTIM-APGF
     Indication: Neoplasm malignant
     Dosage: 5MG EVERY 21 DAYS SUBCUTANEOUS?
     Route: 058
     Dates: start: 202403

REACTIONS (2)
  - Staphylococcal infection [None]
  - Cystitis [None]

NARRATIVE: CASE EVENT DATE: 20240318
